FAERS Safety Report 7644540-0 (Version None)
Quarter: 2011Q3

REPORT INFORMATION
  Report Type: 
  Country: None (occurrence: None)
  Receive Date: 20110729
  Receipt Date: 20110720
  Transmission Date: 20111222
  Serious: Yes (Hospitalization, Other)
  Sender: FDA-Public Use
  Company Number: US-ELI_LILLY_AND_COMPANY-US201106003905

PATIENT
  Sex: Male
  Weight: 102.95 kg

DRUGS (13)
  1. EFFIENT [Suspect]
     Dosage: 10 MG, MAINTENANCE DOSE
     Route: 048
     Dates: start: 20101124, end: 20110609
  2. ASPIRIN [Concomitant]
     Dosage: 81 MG, QD
  3. LISINOPRIL [Concomitant]
  4. METOPROLOL TARTRATE [Concomitant]
  5. SIMVASTATIN [Concomitant]
  6. FENOFIBRATE [Concomitant]
     Dosage: 160 MG, QD
  7. NOVOLOG [Concomitant]
  8. EFFIENT [Suspect]
     Indication: PERCUTANEOUS CORONARY INTERVENTION
     Dosage: 60 MG, QD
     Route: 048
     Dates: start: 20101124, end: 20101124
  9. MOTRIN [Concomitant]
     Dosage: 500 MG, PRN
  10. GABAPENTIN [Concomitant]
  11. AMITRIPTYLINE HCL [Concomitant]
  12. LOVAZA [Concomitant]
     Dosage: 200 MG, QD
  13. LEVEMIR [Concomitant]

REACTIONS (3)
  - COAGULOPATHY [None]
  - IN-STENT CORONARY ARTERY RESTENOSIS [None]
  - MEDIASTINAL OPERATION [None]
